FAERS Safety Report 8565414-7 (Version None)
Quarter: 2012Q3

REPORT INFORMATION
  Report Type: 
  Country: None (occurrence: None)
  Receive Date: 20120803
  Receipt Date: 20120727
  Transmission Date: 20120928
  Serious: Yes (Other)
  Sender: FDA-Public Use
  Company Number: AU-PFIZER INC-2012154382

PATIENT
  Age: 58 Year
  Sex: Female
  Weight: 76 kg

DRUGS (3)
  1. CITALOPRAM HYDROBROMIDE [Concomitant]
     Indication: DEPRESSION
     Dosage: 20 MG, UNK
     Route: 048
  2. IRBESARTAN + HYDROCHLOROTHIAZIDE [Concomitant]
     Indication: BLOOD PRESSURE
     Dosage: 12.5MG/150 MG
     Route: 048
  3. IBUPROFEN (ADVIL) [Suspect]
     Indication: HEADACHE
     Dosage: 1 DF, SINGLE
     Route: 048
     Dates: start: 20120622, end: 20120622

REACTIONS (6)
  - ERYTHEMA [None]
  - WHEEZING [None]
  - HYPERSENSITIVITY [None]
  - SWELLING [None]
  - SKIN DISCOLOURATION [None]
  - SWELLING FACE [None]
